FAERS Safety Report 5218202-3 (Version None)
Quarter: 2007Q1

REPORT INFORMATION
  Report Type: 
  Country: None (occurrence: None)
  Receive Date: 20061130
  Receipt Date: 20060815
  Transmission Date: 20070707
  Serious: Yes (Hospitalization)
  Sender: FDA-Public Use
  Company Number: US_0410107215

PATIENT
  Sex: Male
  Weight: 76.6 kg

DRUGS (5)
  1. ZYPREXA [Suspect]
     Indication: DEPRESSION
     Dosage: 5 MG, 10MG
     Dates: start: 20010901
  2. ZYPREXA [Suspect]
     Indication: DEPRESSION
     Dosage: 5 MG, 10MG
     Dates: start: 20030101
  3. RISPERIDONE [Concomitant]
  4. PAROXETINE HCL [Concomitant]
  5. DOXEPIN HCL [Concomitant]

REACTIONS (2)
  - DIABETES MELLITUS [None]
  - METABOLIC DISORDER [None]
